FAERS Safety Report 6478218-6 (Version None)
Quarter: 2009Q4

REPORT INFORMATION
  Report Type: 
  Country: None (occurrence: None)
  Receive Date: 20091202
  Receipt Date: 20091119
  Transmission Date: 20100525
  Serious: Yes (Hospitalization, Other)
  Sender: FDA-Public Use
  Company Number: 2009AP004677

PATIENT
  Age: 82 Year
  Sex: Female

DRUGS (8)
  1. ALENDRONATE SODIUM [Suspect]
     Indication: FRACTURE
     Dosage: 70 MG; PO
     Route: 048
     Dates: start: 20091011, end: 20091015
  2. ALENDRONATE SODIUM [Suspect]
     Indication: PROPHYLAXIS
     Dosage: 70 MG; PO
     Route: 048
     Dates: start: 20091011, end: 20091015
  3. ASPIRIN [Concomitant]
  4. CALCIUM CARBONATE [Concomitant]
  5. COLECALCIFEROL (COLECALCIFEROL) [Concomitant]
  6. CITALOPRAM HYDROBROMIDE [Concomitant]
  7. ACETAMINOPHEN [Concomitant]
  8. TOLTERODINE TARTRATE [Concomitant]

REACTIONS (6)
  - ERYTHEMA [None]
  - GINGIVAL ULCERATION [None]
  - GLOSSODYNIA [None]
  - LIP SWELLING [None]
  - MOUTH ULCERATION [None]
  - PAIN IN JAW [None]
